FAERS Safety Report 6057510-3 (Version None)
Quarter: 2009Q1

REPORT INFORMATION
  Report Type: 
  Country: None (occurrence: None)
  Receive Date: 20090127
  Receipt Date: 20090127
  Transmission Date: 20090719
  Serious: Yes (Hospitalization)
  Sender: FDA-Public Use
  Company Number: None

PATIENT
  Age: 28 Year
  Sex: Female

DRUGS (2)
  1. METHERGINE [Suspect]
     Indication: UTERINE HAEMORRHAGE
     Dosage: 0.2MG ONCE IV 1 TIME
     Route: 042
     Dates: start: 20090123, end: 20090123
  2. HEMABATE [Suspect]
     Dosage: 250MCG ONCE IM 1 TIME
     Route: 030
     Dates: start: 20090123, end: 20090123

REACTIONS (1)
  - NO THERAPEUTIC RESPONSE [None]
